FAERS Safety Report 17983850 (Version 1)
Quarter: 2020Q3

REPORT INFORMATION
  Report Type: Spontaneous
  Country: US (occurrence: US)
  Receive Date: 20200705
  Receipt Date: 20200705
  Transmission Date: 20201103
  Serious: Yes (Other)
  Sender: FDA-Public Use
  Company Number: None

PATIENT
  Sex: Female
  Weight: 112.5 kg

DRUGS (8)
  1. EQUATE WOMEN^S VITAMIN [Concomitant]
  2. QUETIAPINE. [Concomitant]
     Active Substance: QUETIAPINE
  3. BUSPIRONE [Suspect]
     Active Substance: BUSPIRONE HYDROCHLORIDE
     Indication: ANXIETY
     Dosage: ?          QUANTITY:1 TABLET(S);?
     Route: 048
  4. MYRBETRIQUE [Concomitant]
  5. LAMOTRIGINE. [Concomitant]
     Active Substance: LAMOTRIGINE
  6. JUNEL?FE [Concomitant]
  7. BUSPIRONE [Suspect]
     Active Substance: BUSPIRONE HYDROCHLORIDE
     Indication: PANIC ATTACK
     Dosage: ?          QUANTITY:1 TABLET(S);?
     Route: 048
  8. WRIST BRACE [Concomitant]

REACTIONS (9)
  - Panic attack [None]
  - Anger [None]
  - Chest pain [None]
  - Tremor [None]
  - Condition aggravated [None]
  - Amnesia [None]
  - Anxiety [None]
  - Aggression [None]
  - Depression [None]
